FAERS Safety Report 8294265-6 (Version None)
Quarter: 2012Q2

REPORT INFORMATION
  Report Type: 
  Country: None (occurrence: None)
  Receive Date: 20120418
  Receipt Date: 20120412
  Transmission Date: 20120825
  Serious: Yes (Hospitalization, Disabling)
  Sender: FDA-Public Use
  Company Number: DE-PFIZER INC-2012091096

PATIENT
  Age: 59 Year
  Sex: Male
  Weight: 104 kg

DRUGS (1)
  1. TEMSIROLIMUS [Suspect]
     Indication: RENAL CELL CARCINOMA
     Dosage: 25 MG, UNK
     Route: 042
     Dates: start: 20110315, end: 20110608

REACTIONS (1)
  - PERIPHERAL ARTERIAL OCCLUSIVE DISEASE [None]
